FAERS Safety Report 6209993-3 (Version None)
Quarter: 2009Q2

REPORT INFORMATION
  Report Type: 
  Country: None (occurrence: None)
  Receive Date: 20090529
  Receipt Date: 20090529
  Transmission Date: 20091009
  Serious: Yes (Life-Threatening)
  Sender: FDA-Public Use
  Company Number: None

PATIENT
  Sex: Female
  Weight: 65 kg

DRUGS (1)
  1. PROMETHAZINE [Suspect]
     Indication: PROCEDURAL NAUSEA
     Dosage: 25 MG X1 IV
     Route: 042

REACTIONS (3)
  - EXTRAPYRAMIDAL DISORDER [None]
  - STUPOR [None]
  - TRISMUS [None]
